FAERS Safety Report 22070002 (Version 1)
Quarter: 2023Q1

REPORT INFORMATION
  Report Type: Report from Study
  Country: US (occurrence: US)
  Receive Date: 20230307
  Receipt Date: 20230307
  Transmission Date: 20230417
  Serious: Yes (Other)
  Sender: FDA-Public Use
  Company Number: US-ABBVIE-4269716

PATIENT
  Sex: Female
  Weight: 54 kg

DRUGS (6)
  1. SKYRIZI [Suspect]
     Active Substance: RISANKIZUMAB-RZAA
     Indication: Psoriasis
     Dosage: FORM STRENGTH: 150 MILLIGRAM
     Route: 058
     Dates: start: 202206
  2. SKYRIZI [Suspect]
     Active Substance: RISANKIZUMAB-RZAA
     Dosage: FORM STRENGTH: 150 MILLIGRAM
     Route: 058
     Dates: start: 2020, end: 2021
  3. CALCIUM [Concomitant]
     Active Substance: CALCIUM
     Indication: Mineral supplementation
  4. CLARITIN [Concomitant]
     Active Substance: LORATADINE
     Indication: Hypersensitivity
  5. ANASTROZOLE [Concomitant]
     Active Substance: ANASTROZOLE
     Indication: Product used for unknown indication
  6. PROLIA [Concomitant]
     Active Substance: DENOSUMAB
     Indication: Bone disorder

REACTIONS (2)
  - Breast mass [Recovered/Resolved]
  - Diverticulitis [Recovered/Resolved]

NARRATIVE: CASE EVENT DATE: 20210101
